FAERS Safety Report 6267328-4 (Version None)
Quarter: 2009Q3

REPORT INFORMATION
  Report Type: 
  Country: None (occurrence: None)
  Receive Date: 20090714
  Receipt Date: 20090706
  Transmission Date: 20100115
  Serious: Yes (Other)
  Sender: FDA-Public Use
  Company Number: A0699988B

PATIENT
  Age: 56 Year
  Sex: Male

DRUGS (6)
  1. AVODART [Suspect]
     Indication: BENIGN PROSTATIC HYPERPLASIA
     Dosage: .5MG PER DAY
     Route: 048
     Dates: start: 20081201
  2. TOPROL-XL [Concomitant]
  3. GLUCOPHAGE [Concomitant]
  4. JANUVIA [Concomitant]
  5. GLIPIZIDE [Concomitant]
  6. CELEBREX [Concomitant]

REACTIONS (6)
  - EJACULATION FAILURE [None]
  - ERECTILE DYSFUNCTION [None]
  - FATIGUE [None]
  - SEMEN VISCOSITY ABNORMAL [None]
  - SEMEN VOLUME DECREASED [None]
  - TESTICULAR ATROPHY [None]
